FAERS Safety Report 10609433 (Version 1)
Quarter: 2014Q4

REPORT INFORMATION
  Report Type: Spontaneous
  Country: JP (occurrence: JP)
  Receive Date: 20141126
  Receipt Date: 20141126
  Transmission Date: 20150529
  Serious: Yes (Death)
  Sender: FDA-Public Use
  Company Number: JP-CIPLA LTD.-2014JP02155

PATIENT
  Age: 71 Year
  Sex: Male

DRUGS (2)
  1. CISPLATIN. [Suspect]
     Active Substance: CISPLATIN
     Indication: OESOPHAGEAL CARCINOMA
     Dosage: 80 MG/M2 OVER 2 H WITH ADEQUATE HYDRATION EVERY 4 WEEK
  2. IRINOTECAN [Suspect]
     Active Substance: IRINOTECAN
     Indication: OESOPHAGEAL CARCINOMA
     Dosage: 70 MG/M2 INTRAVENOUS INFUSION OVER 90 MIN DAY 1 AND DAY 15 EVERY 4 WEEK
     Route: 042

REACTIONS (1)
  - Disease progression [Fatal]
